FAERS Safety Report 7134738-2 (Version None)
Quarter: 2010Q4

REPORT INFORMATION
  Report Type: 
  Country: None (occurrence: None)
  Receive Date: 20101203
  Receipt Date: 20101123
  Transmission Date: 20110411
  Serious: Yes (Hospitalization, Other)
  Sender: FDA-Public Use
  Company Number: US-ROCHE-734034

PATIENT
  Sex: Female
  Weight: 64 kg

DRUGS (12)
  1. ACTEMRA [Suspect]
     Dosage: FORM: INFUSION; STRENGTH: 200MG/10ML (20MG/ML) SOLUTION; DOSE: 8 MG/KG
     Route: 042
     Dates: start: 20100609
  2. ACTEMRA [Suspect]
     Dosage: DOSE: 8MG/KG
     Route: 042
     Dates: start: 20100707
  3. ACTEMRA [Suspect]
     Dosage: DOSE: 8 MG/KG
     Route: 042
     Dates: start: 20100816
  4. ACTEMRA [Suspect]
     Dosage: DOSE: 8 MG/KG
     Route: 042
     Dates: start: 20100917
  5. METHOTREXATE [Concomitant]
     Route: 048
  6. MOBIC [Concomitant]
     Route: 048
  7. PREDNISONE [Concomitant]
     Route: 048
  8. CALCIUM CARBONATE [Concomitant]
     Route: 048
  9. ARMOUR THYROID [Concomitant]
     Route: 048
  10. CHOLECALCIFEROL [Concomitant]
     Dosage: DOSE: 1000 UNITS
     Route: 048
  11. FOLVITE [Concomitant]
     Route: 048
  12. PHENERGAN [Concomitant]
     Dosage: AS NEEDED
     Route: 048

REACTIONS (3)
  - CHOLELITHIASIS [None]
  - DIVERTICULAR PERFORATION [None]
  - SEPTIC SHOCK [None]
